FAERS Safety Report 8585751-X (Version None)
Quarter: 2012Q3

REPORT INFORMATION
  Report Type: 
  Country: None (occurrence: None)
  Receive Date: 20120810
  Receipt Date: 20120803
  Transmission Date: 20120928
  Serious: Yes (Other)
  Sender: FDA-Public Use
  Company Number: JP-VERTEX PHARMACEUTICALS INC.-AE-2012-004795

PATIENT
  Age: 50 Year
  Sex: Male

DRUGS (10)
  1. RIBAVIRIN [Concomitant]
     Route: 048
     Dates: start: 20120411, end: 20120501
  2. RIBAVIRIN [Concomitant]
     Route: 048
     Dates: start: 20120502, end: 20120731
  3. PEG-INTRON [Concomitant]
     Indication: HEPATITIS C
     Route: 058
     Dates: start: 20120214, end: 20120326
  4. PEG-INTRON [Concomitant]
     Route: 058
     Dates: start: 20120327
  5. CLOBETASOL PROPIONATE [Concomitant]
     Route: 062
     Dates: end: 20120605
  6. TELAVIC [Suspect]
     Indication: HEPATITIS C
     Route: 048
     Dates: start: 20120214, end: 20120508
  7. PEG-INTRON [Concomitant]
     Route: 058
     Dates: end: 20120724
  8. EPINASTINE HYDROCHLORIDE [Concomitant]
     Route: 048
  9. RIBAVIRIN [Concomitant]
     Indication: HEPATITIS C
     Route: 048
     Dates: start: 20120214, end: 20120410
  10. ALLOPURINOL [Concomitant]
     Route: 048
     Dates: end: 20120605

REACTIONS (1)
  - NEUTROPHIL COUNT DECREASED [None]
